FAERS Safety Report 16702358 (Version 1)
Quarter: 2019Q3

REPORT INFORMATION
  Report Type: Spontaneous
  Country: US (occurrence: US)
  Receive Date: 20190627
  Receipt Date: 20190627
  Transmission Date: 20191004
  Serious: Yes (Death, Hospitalization)
  Sender: FDA-Public Use
  Company Number: None

PATIENT
  Age: 8 Year
  Sex: Male
  Weight: 55.1 kg

DRUGS (4)
  1. ZINECARD [Suspect]
     Active Substance: DEXRAZOXANE HYDROCHLORIDE
     Dates: end: 20190605
  2. DOXORUBICIN HYDROCHLORIDE. [Suspect]
     Active Substance: DOXORUBICIN HYDROCHLORIDE
     Dates: end: 20190605
  3. CISPLATIN. [Suspect]
     Active Substance: CISPLATIN
     Dates: end: 20190604
  4. NEXAVAR [Suspect]
     Active Substance: SORAFENIB
     Dates: end: 20190607

REACTIONS (20)
  - Abdominal pain [None]
  - Dialysis [None]
  - Pulse absent [None]
  - Orthopnoea [None]
  - Respiratory acidosis [None]
  - Tumour lysis syndrome [None]
  - Encephalopathy [None]
  - Unresponsive to stimuli [None]
  - Discomfort [None]
  - Mental status changes [None]
  - Nausea [None]
  - Vomiting [None]
  - Pneumonia [None]
  - Acute kidney injury [None]
  - Hypotension [None]
  - Pleural effusion [None]
  - Staphylococcus test positive [None]
  - Hypoxia [None]
  - Pain [None]
  - Agitation [None]

NARRATIVE: CASE EVENT DATE: 20190604
